FAERS Safety Report 6727672-0 (Version None)
Quarter: 2010Q2

REPORT INFORMATION
  Report Type: 
  Country: None (occurrence: None)
  Receive Date: 20100512
  Receipt Date: 20100503
  Transmission Date: 20101027
  Serious: Yes (Hospitalization, Other)
  Sender: FDA-Public Use
  Company Number: JHP201000153

PATIENT
  Age: 49 Year
  Sex: Female
  Weight: 52 kg

DRUGS (10)
  1. EPINEPHRINE [Suspect]
     Indication: HAEMOSTASIS
     Dosage: 0.33 MG/L IN 1 L SALINE IRRIGATION
     Route: 011
  2. GLYCOPYRROLATE [Concomitant]
  3. MIDAZOLAM HYDROCHLORIDE [Concomitant]
  4. PROPOFOL [Concomitant]
  5. LIDOCAINE HCL [Concomitant]
  6. ROCURONIUM BROMIDE [Concomitant]
  7. NITROUS OXIDE W/ OXYGEN [Concomitant]
  8. HYDROCORTISONE [Concomitant]
  9. CEFAZOLIN [Concomitant]
  10. LIDOCAINE [Concomitant]

REACTIONS (2)
  - SUPRAVENTRICULAR TACHYCARDIA [None]
  - VENTRICULAR TACHYCARDIA [None]
